FAERS Safety Report 8161474-6 (Version None)
Quarter: 2012Q1

REPORT INFORMATION
  Report Type: 
  Country: None (occurrence: None)
  Receive Date: 20120224
  Receipt Date: 20110909
  Transmission Date: 20120608
  Serious: No
  Sender: FDA-Public Use
  Company Number: US-MYLANLABS-2011S1019112

PATIENT
  Age: 54 Year
  Sex: Female

DRUGS (2)
  1. ALPRAZOLAM [Suspect]
     Indication: ANXIETY
     Route: 048
     Dates: start: 20110903
  2. LISINOPRIL [Concomitant]
     Indication: BLOOD PRESSURE INCREASED

REACTIONS (3)
  - URTICARIA [None]
  - DRUG INEFFECTIVE [None]
  - ANXIETY [None]
